FAERS Safety Report 25297453 (Version 1)
Quarter: 2025Q2

REPORT INFORMATION
  Report Type: Spontaneous
  Country: DE (occurrence: DE)
  Receive Date: 20250511
  Receipt Date: 20250511
  Transmission Date: 20250717
  Serious: Yes (Life-Threatening)
  Sender: ROCHE
  Company Number: None

PATIENT
  Age: 44 Year
  Sex: Male
  Weight: 126 kg

DRUGS (1)
  1. OCREVUS [Suspect]
     Active Substance: OCRELIZUMAB
     Indication: Multiple sclerosis
     Route: 065
     Dates: start: 20230801, end: 20250101

REACTIONS (11)
  - Adenovirus infection [Unknown]
  - Gastroenteritis [Unknown]
  - Pyrexia [Unknown]
  - Haemophagocytic lymphohistiocytosis [Unknown]
  - Blood immunoglobulin M decreased [Unknown]
  - Blood immunoglobulin G decreased [Unknown]
  - Acute kidney injury [Unknown]
  - Pneumonia [Unknown]
  - Pleural effusion [Unknown]
  - Pulmonary valve incompetence [Unknown]
  - Acute respiratory distress syndrome [Unknown]

NARRATIVE: CASE EVENT DATE: 20250306
